FAERS Safety Report 24925846 (Version 1)
Quarter: 2025Q1

REPORT INFORMATION
  Report Type: Spontaneous
  Country: US (occurrence: US)
  Receive Date: 20250205
  Receipt Date: 20250205
  Transmission Date: 20250408
  Serious: No
  Sender: ALMUS
  Company Number: US-ALM-HQ-US-2023-2480

PATIENT
  Sex: Female

DRUGS (1)
  1. KLISYRI [Suspect]
     Active Substance: TIRBANIBULIN
     Indication: Actinic keratosis
     Dosage: APPLY ALL OVER HER FACE FOR THE PRECANCEROUS AREAS ON HER FACE
     Dates: start: 20231012, end: 20231016

REACTIONS (2)
  - Skin burning sensation [Recovering/Resolving]
  - Erythema [Recovering/Resolving]

NARRATIVE: CASE EVENT DATE: 20231015
